FAERS Safety Report 10597406 (Version 1)
Quarter: 2014Q4

REPORT INFORMATION
  Report Type: Spontaneous
  Country: US (occurrence: None)
  Receive Date: 20141120
  Receipt Date: 20141120
  Transmission Date: 20150529
  Serious: Yes (Life-Threatening)
  Sender: FDA-Public Use
  Company Number: None

PATIENT
  Age: 80 Year
  Sex: Male
  Weight: 93.08 kg

DRUGS (1)
  1. LINEZOLID. [Suspect]
     Active Substance: LINEZOLID
     Indication: DIABETIC FOOT
     Route: 048
     Dates: start: 20100527, end: 20100626

REACTIONS (4)
  - Haemorrhage [None]
  - Dyspnoea [None]
  - Chest pain [None]
  - Thrombocytopenia [None]

NARRATIVE: CASE EVENT DATE: 20100622
